FAERS Safety Report 7352915-2 (Version None)
Quarter: 2011Q1

REPORT INFORMATION
  Report Type: 
  Country: None (occurrence: None)
  Receive Date: 20110304
  Receipt Date: 20110217
  Transmission Date: 20110831
  Serious: Yes (Other)
  Sender: FDA-Public Use
  Company Number: EU-2011-10021

PATIENT
  Age: 53 Year
  Sex: Female

DRUGS (8)
  1. TRAMADOL HCL [Concomitant]
  2. FLUVASTATIN [Concomitant]
  3. DOLQUINE (HYDROXYCHLOROQUINE SULFATE) [Concomitant]
  4. EZETIMIBE [Concomitant]
  5. CLOPIDOGREL [Concomitant]
  6. EKISTOL (CILOSTAZOL) TABLET [Suspect]
     Indication: INTERMITTENT CLAUDICATION
     Dosage: 200 MG MILLIGRAM(S), DAILY DOSE, ORAL
     Route: 048
     Dates: start: 20101108, end: 20101109
  7. ACENOCUMAROL (ACENOCOUMAROL) [Suspect]
     Indication: ACUTE MYOCARDIAL INFARCTION
     Dates: start: 20070925
  8. PANTOPRAZOLE [Suspect]
     Dosage: ORAL
     Route: 048
     Dates: start: 20071018

REACTIONS (6)
  - DIZZINESS [None]
  - VOMITING [None]
  - INTERNATIONAL NORMALISED RATIO INCREASED [None]
  - PALPITATIONS [None]
  - DRUG INTERACTION [None]
  - COUGH [None]
